FAERS Safety Report 9870565 (Version 1)
Quarter: 2014Q1

REPORT INFORMATION
  Report Type: Spontaneous
  Country: US (occurrence: US)
  Receive Date: 20140205
  Receipt Date: 20140205
  Transmission Date: 20141002
  Serious: Yes (Other)
  Sender: FDA-Public Use
  Company Number: US-JNJFOC-20140201934

PATIENT
  Age: 60 Year
  Sex: Female

DRUGS (4)
  1. INFLIXIMAB, RECOMBINANT [Suspect]
     Indication: CROHN^S DISEASE
     Route: 042
  2. CERTOLIZUMAB [Suspect]
     Indication: CROHN^S DISEASE
     Route: 065
  3. MERCAPTOPURINE [Suspect]
     Indication: CROHN^S DISEASE
     Route: 065
  4. PREDNISONE [Suspect]
     Indication: CROHN^S DISEASE
     Route: 065

REACTIONS (9)
  - Hepatosplenic T-cell lymphoma [Unknown]
  - Hyperbilirubinaemia [Unknown]
  - Respiratory failure [Unknown]
  - Splenomegaly [Unknown]
  - Hepatomegaly [Unknown]
  - Thrombocytopenia [Unknown]
  - Intestinal obstruction [Unknown]
  - Abdominal abscess [Unknown]
  - Crohn^s disease [Unknown]
